FAERS Safety Report 18322678 (Version 3)
Quarter: 2020Q4

REPORT INFORMATION
  Report Type: Report from Study
  Country: FR (occurrence: FR)
  Receive Date: 20200928
  Receipt Date: 20201202
  Transmission Date: 20210113
  Serious: Yes (Other)
  Sender: FDA-Public Use
  Company Number: FR-INCYTE CORPORATION-2020IN009128

PATIENT

DRUGS (5)
  1. RENITEC [ENALAPRILAT] [Concomitant]
     Active Substance: ENALAPRILAT
     Indication: HYPERTENSION
     Dosage: UNK
     Route: 048
  2. JAKAVI [Suspect]
     Active Substance: RUXOLITINIB
     Dosage: 20 MG, DAILY
     Route: 048
     Dates: start: 20201014
  3. JAKAVI [Suspect]
     Active Substance: RUXOLITINIB
     Dosage: 40 MG, DAILY
     Route: 048
     Dates: start: 20200923, end: 20201013
  4. JAKAVI [Suspect]
     Active Substance: RUXOLITINIB
     Indication: PRIMARY MYELOFIBROSIS
     Dosage: 40 MG, DAILY
     Route: 048
     Dates: start: 20200814, end: 20200902
  5. SECTRAL [Concomitant]
     Active Substance: ACEBUTOLOL HYDROCHLORIDE
     Indication: HYPERTENSION
     Dosage: UNK
     Route: 048

REACTIONS (7)
  - Thrombocytopenia [Recovered/Resolved]
  - Anaemia [Recovering/Resolving]
  - Malaise [Recovering/Resolving]
  - Thrombocytopenia [Not Recovered/Not Resolved]
  - Pallor [Unknown]
  - Concomitant disease aggravated [Recovering/Resolving]
  - Dyspnoea exertional [Not Recovered/Not Resolved]

NARRATIVE: CASE EVENT DATE: 20200901
